FAERS Safety Report 6265096-3 (Version None)
Quarter: 2009Q3

REPORT INFORMATION
  Report Type: 
  Country: None (occurrence: None)
  Receive Date: 20090713
  Receipt Date: 20090706
  Transmission Date: 20100115
  Serious: Yes (Disabling)
  Sender: FDA-Public Use
  Company Number: GB-PFIZER INC-2009229249

PATIENT
  Age: 32 Year

DRUGS (2)
  1. CELEBREX [Suspect]
     Indication: PAIN
     Dosage: 100 MG, UNK
     Route: 048
     Dates: start: 20090506, end: 20090509
  2. DESOGESTREL AND ETHINYL ESTRADIOL [Concomitant]
     Indication: CONTRACEPTION
     Dosage: UNK
     Route: 048
     Dates: start: 20081201

REACTIONS (3)
  - ERYTHEMA NODOSUM [None]
  - JOINT SWELLING [None]
  - RASH [None]
